FAERS Safety Report 4693525-5 (Version None)
Quarter: 2005Q2

REPORT INFORMATION
  Report Type: 
  Country: None (occurrence: None)
  Receive Date: 20050615
  Receipt Date: 20050525
  Transmission Date: 20051028
  Serious: No
  Sender: FDA-Public Use
  Company Number: US_0411107590

PATIENT
  Sex: Female
  Weight: 82 kg

DRUGS (7)
  1. ZYPREXA [Suspect]
     Dosage: 30 MG DAY
     Dates: start: 20040505
  2. ATENOL (ATENOLOL) [Concomitant]
  3. CELEXA [Concomitant]
  4. HALDOL (HALOPERIDOL DECANOATE) [Concomitant]
  5. GEODON [Concomitant]
  6. DEPAKOTE [Concomitant]
  7. AMILORID/HCTZ [Concomitant]

REACTIONS (10)
  - AGGRESSION [None]
  - ANXIETY [None]
  - BLOOD URINE PRESENT [None]
  - DYSPNOEA [None]
  - GLOBULIN URINE PRESENT [None]
  - GLYCOSYLATED HAEMOGLOBIN INCREASED [None]
  - HYPERGLYCAEMIA [None]
  - PRESCRIBED OVERDOSE [None]
  - THIRST [None]
  - URINE OUTPUT INCREASED [None]
